FAERS Safety Report 7733632-3 (Version None)
Quarter: 2011Q3

REPORT INFORMATION
  Report Type: 
  Country: None (occurrence: None)
  Receive Date: 20110907
  Receipt Date: 20110830
  Transmission Date: 20111222
  Serious: Yes (Other)
  Sender: FDA-Public Use
  Company Number: FR-BRISTOL-MYERS SQUIBB COMPANY-15940257

PATIENT
  Age: 69 Year
  Sex: Female

DRUGS (3)
  1. ERBITUX [Suspect]
     Indication: COLON CANCER
     Dosage: NO OF COURSES:9
     Route: 042
  2. IRINOTECAN HCL [Concomitant]
     Indication: COLON CANCER
     Route: 042
  3. FLUOROURACIL [Concomitant]
     Indication: COLON CANCER
     Route: 042

REACTIONS (3)
  - ARTHRALGIA [None]
  - BLOOD IMMUNOGLOBULIN G INCREASED [None]
  - BONE PAIN [None]
